FAERS Safety Report 16479728 (Version 1)
Quarter: 2019Q2

REPORT INFORMATION
  Report Type: Spontaneous
  Country: US (occurrence: US)
  Receive Date: 20190626
  Receipt Date: 20190626
  Transmission Date: 20190711
  Serious: Yes (Hospitalization)
  Sender: FDA-Public Use
  Company Number: US-VERTEX PHARMACEUTICALS-2019-005869

PATIENT
  Age: 62 Year
  Sex: Female

DRUGS (11)
  1. CAYSTON [Concomitant]
     Active Substance: AZTREONAM
  2. QVAR [Concomitant]
     Active Substance: BECLOMETHASONE DIPROPIONATE
  3. AZITHROMYCIN ANHYDROUS. [Concomitant]
     Active Substance: AZITHROMYCIN ANHYDROUS
  4. SODIUM CHLORIDE. [Concomitant]
     Active Substance: SODIUM CHLORIDE
  5. MONTELUKAST [Concomitant]
     Active Substance: MONTELUKAST SODIUM
  6. TOBRAMYCIN. [Concomitant]
     Active Substance: TOBRAMYCIN
  7. FLUTICASONE. [Concomitant]
     Active Substance: FLUTICASONE
  8. SYMDEKO [Suspect]
     Active Substance: IVACAFTOR\TEZACAFTOR
     Indication: CYSTIC FIBROSIS
     Dosage: 100MG TEZACAFTOR/150MG IVACAFTOR AM; 150MG IVACAFTOR PM WITH FAT CONTAINING FOODS
     Route: 048
     Dates: start: 20181011
  9. PROAIR HFA [Concomitant]
     Active Substance: ALBUTEROL SULFATE
  10. PULMOZYME [Concomitant]
     Active Substance: DORNASE ALFA
  11. CREON [Concomitant]
     Active Substance: PANCRELIPASE AMYLASE\PANCRELIPASE LIPASE\PANCRELIPASE PROTEASE

REACTIONS (1)
  - Lung infection [Recovering/Resolving]

NARRATIVE: CASE EVENT DATE: 201906
